FAERS Safety Report 25717786 (Version 1)
Quarter: 2025Q3

REPORT INFORMATION
  Report Type: Spontaneous
  Country: AU (occurrence: AU)
  Receive Date: 20250822
  Receipt Date: 20250822
  Transmission Date: 20251020
  Serious: Yes (Hospitalization, Other)
  Sender: REGENERON
  Company Number: AU-Medison-001516

PATIENT
  Age: 75 Year
  Sex: Female

DRUGS (1)
  1. LIBTAYO [Suspect]
     Active Substance: CEMIPLIMAB-RWLC
     Route: 065
     Dates: start: 202310

REACTIONS (10)
  - Eye pain [Unknown]
  - Colitis [Unknown]
  - Bronchiectasis [Unknown]
  - Colostomy [Unknown]
  - Surgery [Unknown]
  - Pneumonia pseudomonal [Unknown]
  - Treatment delayed [Unknown]
  - Malaise [Unknown]
  - Diverticulum [Unknown]
  - Female genital tract fistula [Unknown]

NARRATIVE: CASE EVENT DATE: 20250101
